FAERS Safety Report 10445164 (Version 2)
Quarter: 2014Q3

REPORT INFORMATION
  Report Type: Other
  Country: GB (occurrence: GB)
  Receive Date: 20140910
  Receipt Date: 20140923
  Transmission Date: 20150326
  Serious: Yes (Other)
  Sender: FDA-Public Use
  Company Number: GB-MYLAN-2014M1003286

PATIENT

DRUGS (5)
  1. AMLODIPINE GENERICS TABLETS [Suspect]
     Active Substance: AMLODIPINE BESYLATE
     Dosage: 10 MG, QD
  2. AMLODIPINE GENERICS TABLETS [Suspect]
     Active Substance: AMLODIPINE BESYLATE
     Dosage: 5 MG, QD
  3. AMLODIPINE GENERICS TABLETS [Suspect]
     Active Substance: AMLODIPINE BESYLATE
     Indication: HYPERTENSION
     Dosage: 5 MG, QD
     Route: 065
  4. AMLODIPINE GENERICS TABLETS [Suspect]
     Active Substance: AMLODIPINE BESYLATE
     Dosage: 5 MG, QD
  5. AMLODIPINE GENERICS TABLETS [Suspect]
     Active Substance: AMLODIPINE BESYLATE
     Dosage: 10 MG, QD
     Dates: start: 201401

REACTIONS (3)
  - Cerebral disorder [Unknown]
  - Brain oedema [Unknown]
  - Headache [Recovering/Resolving]

NARRATIVE: CASE EVENT DATE: 201405
